FAERS Safety Report 9506412 (Version 1)
Quarter: 2013Q1

REPORT INFORMATION
  Report Type: Spontaneous
  Country: US (occurrence: None)
  Receive Date: 20130301
  Receipt Date: 20130301
  Transmission Date: 20140127
  Serious: Yes (Death, Life-Threatening, Other)
  Sender: FDA-Public Use
  Company Number: RB-47041-2012

PATIENT
  Age: 26 Year
  Sex: Male

DRUGS (3)
  1. SUBOXONE [Suspect]
     Indication: DRUG DEPENDENCE
     Route: 060
  2. PERCOCET [Suspect]
     Route: 048
  3. XANAX [Suspect]
     Route: 048

REACTIONS (6)
  - Underdose [None]
  - Mood swings [None]
  - Pain [None]
  - Drug dependence [None]
  - Overdose [None]
  - Drug diversion [None]
